FAERS Safety Report 16025586 (Version 1)
Quarter: 2019Q1

REPORT INFORMATION
  Report Type: Report from Study
  Country: None (occurrence: DE)
  Receive Date: 20190302
  Receipt Date: 20190302
  Transmission Date: 20190418
  Serious: Yes (Hospitalization)
  Sender: FDA-Public Use
  Company Number: DE-ABBVIE-19K-062-2684589-00

PATIENT
  Age: 58 Year
  Sex: Female
  Weight: 90 kg

DRUGS (1)
  1. HUMIRA [Suspect]
     Active Substance: ADALIMUMAB
     Indication: RHEUMATOID ARTHRITIS
     Route: 058
     Dates: end: 201811

REACTIONS (5)
  - Visual impairment [Recovered/Resolved with Sequelae]
  - Hypoaesthesia [Recovered/Resolved with Sequelae]
  - Gait disturbance [Recovered/Resolved with Sequelae]
  - Speech disorder [Recovered/Resolved with Sequelae]
  - Neurosarcoidosis [Recovered/Resolved with Sequelae]

NARRATIVE: CASE EVENT DATE: 201811
